FAERS Safety Report 19895871 (Version 2)
Quarter: 2021Q4

REPORT INFORMATION
  Report Type: Report from Study
  Country: US (occurrence: US)
  Receive Date: 20210929
  Receipt Date: 20211224
  Transmission Date: 20220303
  Serious: Yes (Hospitalization, Other)
  Sender: FDA-Public Use
  Company Number: US-ASTELLAS-2021US034892

PATIENT
  Age: 63 Year
  Sex: Female

DRUGS (4)
  1. GILTERITINIB [Suspect]
     Active Substance: GILTERITINIB
     Indication: Acute myeloid leukaemia
     Route: 048
     Dates: start: 20210825
  2. GILTERITINIB [Suspect]
     Active Substance: GILTERITINIB
     Dosage: 1 DF, ONCE DAILY (IN THE MORNING)
     Route: 048
     Dates: end: 202111
  3. VENCLEXTA [Suspect]
     Active Substance: VENETOCLAX
     Indication: Acute myeloid leukaemia
     Route: 065
     Dates: start: 20210405
  4. CYTARABINE [Suspect]
     Active Substance: CYTARABINE
     Indication: Acute myeloid leukaemia
     Dosage: 20 MG, TWICE DAILY (ON DAYS 1-10 OF 28 DAY CYCLE)
     Route: 065
     Dates: start: 202108

REACTIONS (4)
  - Pyrexia [Unknown]
  - Pneumonia [Unknown]
  - Neutropenia [Unknown]
  - Immunodeficiency [Unknown]

NARRATIVE: CASE EVENT DATE: 20210801
